FAERS Safety Report 8711476 (Version 2)
Quarter: 2012Q4

REPORT INFORMATION
  Report Type: 
  Country: US (occurrence: US)
  Receive Date: 20120807
  Receipt Date: 20121001
  Transmission Date: 20130627
  Serious: Yes (Other)
  Sender: FDA-Public Use
  Company Number: US-ROCHE-1094938

PATIENT
  Sex: Female

DRUGS (1)
  1. XOLAIR [Suspect]
     Indication: ASTHMA
     Route: 065
     Dates: start: 20100803, end: 201101

REACTIONS (5)
  - Dyspnoea [Unknown]
  - Wheezing [Unknown]
  - Dyspnoea exertional [Unknown]
  - Cough [Unknown]
  - Headache [Unknown]
